FAERS Safety Report 15552060 (Version 1)
Quarter: 2018Q4

REPORT INFORMATION
  Report Type: Spontaneous
  Country: FR (occurrence: FR)
  Receive Date: 20181025
  Receipt Date: 20181025
  Transmission Date: 20190205
  Serious: Yes (Hospitalization)
  Sender: FDA-Public Use
  Company Number: FR-TEVA-2018-FR-968746

PATIENT
  Age: 40 Year
  Sex: Male

DRUGS (1)
  1. IBUPROFENE [Suspect]
     Active Substance: IBUPROFEN
     Route: 065

REACTIONS (1)
  - Cerebral vasoconstriction [Not Recovered/Not Resolved]

NARRATIVE: CASE EVENT DATE: 201808
